FAERS Safety Report 4362147-8 (Version None)
Quarter: 2004Q2

REPORT INFORMATION
  Report Type: 
  Country: None (occurrence: None)
  Receive Date: 20040517
  Receipt Date: 20040428
  Transmission Date: 20050107
  Serious: Yes (Hospitalization)
  Sender: FDA-Public Use
  Company Number: 236604

PATIENT
  Age: 78 Year
  Sex: Male
  Weight: 60 kg

DRUGS (6)
  1. NPH INSULIN [Suspect]
     Indication: DIABETES MELLITUS
     Dosage: 18 IU, QD, SUBCUTANEOUS
     Route: 058
  2. SULPERAZON (SULBACTAM SODIUM, CEFOPERAZONE SODIUM) [Concomitant]
  3. MEROPEN (MEROPENEM) [Concomitant]
  4. LEVOFLOXACIN [Concomitant]
  5. OMEGACIN (BIAPENEM) [Concomitant]
  6. CIPROXAN (CIPROFLOXACIN HYDROCHLORIDE) [Concomitant]

REACTIONS (3)
  - ABDOMINAL WALL ABSCESS [None]
  - INJECTION SITE REACTION [None]
  - MEDICATION ERROR [None]
